FAERS Safety Report 9667460 (Version 2)
Quarter: 2013Q4

REPORT INFORMATION
  Report Type: Spontaneous
  Country: US (occurrence: US)
  Receive Date: 20131101
  Receipt Date: 20131101
  Transmission Date: 20140711
  Serious: Yes (Other)
  Sender: FDA-Public Use
  Company Number: US-ORACLE-2011S1000038

PATIENT
  Age: 47 Year
  Sex: Female
  Weight: 83.01 kg

DRUGS (15)
  1. KRYSTEXXA INJECTION [Suspect]
     Indication: GOUT
     Route: 042
     Dates: start: 20110519, end: 20110519
  2. KRYSTEXXA INJECTION [Suspect]
     Indication: GOUT
     Route: 042
     Dates: start: 20110531, end: 20110531
  3. SOLU-MEDROL [Concomitant]
     Indication: PREMEDICATION
     Route: 042
     Dates: start: 20110519, end: 20110519
  4. SOLU-MEDROL [Concomitant]
     Indication: PREMEDICATION
     Route: 042
     Dates: start: 20110531, end: 20110531
  5. BENADRYL /01563701/ [Concomitant]
     Indication: PREMEDICATION
     Route: 048
     Dates: start: 20110519, end: 20110519
  6. BENADRYL /01563701/ [Concomitant]
     Indication: PREMEDICATION
     Route: 048
     Dates: start: 20110531, end: 20110531
  7. LABETALOL [Concomitant]
  8. LASIX /00032601/ [Concomitant]
  9. SYNTHROID [Concomitant]
  10. ZANTAC [Concomitant]
  11. AVALIDE [Concomitant]
  12. HYDRALAZINE [Concomitant]
  13. COLCHICINE [Concomitant]
     Indication: PROPHYLAXIS
  14. MEDROL /00049601/ [Concomitant]
  15. PERCOCET /00446701/ [Concomitant]

REACTIONS (2)
  - Infusion related reaction [Recovered/Resolved]
  - Rash [Unknown]
